FAERS Safety Report 12233322 (Version 1)
Quarter: 2016Q2

REPORT INFORMATION
  Report Type: Other
  Country: GB (occurrence: GB)
  Receive Date: 20160404
  Receipt Date: 20160404
  Transmission Date: 20160815
  Serious: Yes (Disabling)
  Sender: FDA-Public Use
  Company Number: GB-CIPLA LTD.-2016GB03268

PATIENT

DRUGS (3)
  1. SERTRALINE [Suspect]
     Active Substance: SERTRALINE HYDROCHLORIDE
     Dosage: TAPERING DOSE 50MG TO 25MG TO 12.5MG
     Route: 065
  2. SERTRALINE [Suspect]
     Active Substance: SERTRALINE HYDROCHLORIDE
     Dosage: TAPERING DOSE 50MG TO 25MG TO 12.5MG
     Route: 065
  3. SERTRALINE [Suspect]
     Active Substance: SERTRALINE HYDROCHLORIDE
     Dosage: TAPERING DOSE 50MG TO 25MG TO 12.5MG
     Route: 065

REACTIONS (9)
  - Cognitive disorder [Recovered/Resolved]
  - Feeling jittery [Unknown]
  - Withdrawal syndrome [Unknown]
  - Foreign body sensation in eyes [Recovered/Resolved]
  - Anxiety [Recovering/Resolving]
  - Amnesia [Recovered/Resolved]
  - Speech disorder [Recovered/Resolved]
  - Asthenopia [Unknown]
  - Fatigue [Recovered/Resolved]
